FAERS Safety Report 9032377 (Version 5)
Quarter: 2013Q1

REPORT INFORMATION
  Report Type: Spontaneous
  Country: GB (occurrence: None)
  Receive Date: 20130108
  Receipt Date: 20130307
  Transmission Date: 20140127
  Serious: Yes (Life-Threatening, Hospitalization)
  Sender: FDA-Public Use
  Company Number: AUR-APL-2013-00020

PATIENT
  Age: 74 Year
  Sex: Female

DRUGS (14)
  1. CIPROFLOXACIN [Suspect]
     Indication: PNEUMONIA
     Dosage: 500 MG (250 MG, 2 IN 1 D), ORAL
     Route: 048
     Dates: start: 20110215, end: 20110403
  2. CIPROFLOXACIN [Suspect]
     Indication: PERITONITIS BACTERIAL
     Dosage: 500 MG (250 MG, 2 IN 1 D), ORAL
     Route: 048
     Dates: start: 20110215, end: 20110403
  3. PIPERACILLIN AND TAZOBACTAM [Suspect]
     Indication: PERITONITIS BACTERIAL
     Dosage: 13.5 GM (4.5 GM, 3 IN 1 D)
     Route: 042
     Dates: end: 20110504
  4. OMEPRAZOLE [Suspect]
     Indication: PRODUCT USED FOR UNKNOWN INDICATION
  5. TAZOCIN (PIP/TAZO) [Suspect]
     Indication: PNEUMONIA
     Dosage: 13.5 GM (4.5 GM, 3 IN 1 D), INTRAVENOUS
     Route: 042
     Dates: start: 20110211, end: 20110215
  6. ADCAL-D3 (LEKOVIT CA) [Concomitant]
  7. BENZYDAMINE (BENZYDAMINE) [Concomitant]
  8. FOLIC ACID (FOLIC ACID) [Concomitant]
  9. FUROSEMIDE (FUROSEMIDE) [Concomitant]
  10. LACTULOSE (LACTULOSE) [Concomitant]
  11. PANCREATIN (PANCREATIN) [Concomitant]
  12. PHYTOMENADIONE (PHYTOMENADIONE) [Concomitant]
  13. SPIRONOLACTONE (SPIRONOLACTONE) [Concomitant]
  14. VITAMINS [Concomitant]

REACTIONS (3)
  - Clostridium difficile infection [None]
  - Megacolon [None]
  - Diarrhoea [None]
